FAERS Safety Report 6965472-7 (Version None)
Quarter: 2010Q3

REPORT INFORMATION
  Report Type: 
  Country: None (occurrence: None)
  Receive Date: 20100903
  Receipt Date: 20100823
  Transmission Date: 20110219
  Serious: Yes (Hospitalization)
  Sender: FDA-Public Use
  Company Number: B0671016A

PATIENT
  Sex: Male

DRUGS (4)
  1. ZOFRAN [Suspect]
     Indication: PRODUCT USED FOR UNKNOWN INDICATION
     Dosage: 8MG CYCLIC
     Route: 042
     Dates: start: 20100615
  2. AVASTIN [Suspect]
     Indication: PRODUCT USED FOR UNKNOWN INDICATION
     Dosage: 490MG CYCLIC
     Route: 042
     Dates: start: 20090201
  3. EMEND [Concomitant]
     Indication: PRODUCT USED FOR UNKNOWN INDICATION
     Route: 048
     Dates: start: 20100615, end: 20100615
  4. SOLU-MEDROL [Concomitant]
     Indication: PRODUCT USED FOR UNKNOWN INDICATION
     Dosage: 40MG SINGLE DOSE
     Route: 065

REACTIONS (6)
  - CYANOSIS [None]
  - PALATAL OEDEMA [None]
  - PIGMENTATION DISORDER [None]
  - RESPIRATORY DISORDER [None]
  - TREMOR [None]
  - URTICARIA [None]
